FAERS Safety Report 14379235 (Version 1)
Quarter: 2018Q1

REPORT INFORMATION
  Report Type: Spontaneous
  Country: US (occurrence: US)
  Receive Date: 20180112
  Receipt Date: 20180112
  Transmission Date: 20180509
  Serious: Yes (Hospitalization, Other)
  Sender: FDA-Public Use
  Company Number: US-DRREDDYS-USA/USA/16/0085494

PATIENT
  Age: 62 Year
  Sex: Female
  Weight: 51.7 kg

DRUGS (1)
  1. IBUPROFEN 400 MG [Suspect]
     Active Substance: IBUPROFEN
     Indication: BACK PAIN
     Route: 048
     Dates: start: 201511, end: 20160817

REACTIONS (1)
  - Gastric ulcer perforation [Recovered/Resolved]
